FAERS Safety Report 8223462-0 (Version None)
Quarter: 2012Q1

REPORT INFORMATION
  Report Type: 
  Country: None (occurrence: None)
  Receive Date: 20120316
  Receipt Date: 20120307
  Transmission Date: 20120608
  Serious: Yes (Other)
  Sender: FDA-Public Use
  Company Number: AUR-APL-2012-01109

PATIENT
  Age: 76 Year
  Sex: Male

DRUGS (11)
  1. SERTRALINE HYDROCHLORIDE [Suspect]
     Indication: PRODUCT USED FOR UNKNOWN INDICATION
     Dates: start: 20120126
  2. FYBOGEL (PLANTAGP OVATA) [Concomitant]
  3. ADCAL-D3 (LEKOVIT CA_ [Concomitant]
  4. MORPHINE SULFATE [Concomitant]
  5. FRESUBIN (FRESUBIN) [Concomitant]
  6. OMEPRAZOLE [Concomitant]
  7. ACETAMINOPHEN [Concomitant]
  8. PROSTAP (LEUPRORELIN ACETATE) [Concomitant]
  9. RAMIPRIL [Concomitant]
  10. TAMSULOSIN HCL [Concomitant]
  11. THIAMINE HCL [Concomitant]

REACTIONS (1)
  - HYPERKALAEMIA [None]
